FAERS Safety Report 16491177 (Version 1)
Quarter: 2019Q2

REPORT INFORMATION
  Report Type: Spontaneous
  Country: US (occurrence: US)
  Receive Date: 20190628
  Receipt Date: 20190628
  Transmission Date: 20190711
  Serious: No
  Sender: FDA-Public Use
  Company Number: US-PFIZER INC-2019266164

PATIENT
  Age: 62 Year
  Sex: Female
  Weight: 99.34 kg

DRUGS (1)
  1. DEPO-ESTRADIOL [Suspect]
     Active Substance: ESTRADIOL CYPIONATE
     Indication: HORMONE REPLACEMENT THERAPY
     Dosage: 1 ML, MONTHLY
     Dates: start: 2001

REACTIONS (2)
  - Amnesia [Unknown]
  - Body height decreased [Unknown]
